FAERS Safety Report 24364459 (Version 2)
Quarter: 2024Q3

REPORT INFORMATION
  Report Type: Spontaneous
  Country: US (occurrence: US)
  Receive Date: 20240926
  Receipt Date: 20240928
  Transmission Date: 20241016
  Serious: No
  Sender: AMGEN
  Company Number: US-AMGEN-USASP2024191037

PATIENT
  Age: 77 Year
  Sex: Female

DRUGS (2)
  1. AMJEVITA [Suspect]
     Active Substance: ADALIMUMAB-ATTO
     Indication: Product used for unknown indication
     Dosage: UNK, (STRENGTH: 40MG/0.4ML)
     Route: 065
     Dates: start: 2021
  2. AMJEVITA [Suspect]
     Active Substance: ADALIMUMAB-ATTO
     Dosage: UNK, (STRENGTH: 40MG/0.4ML)
     Route: 065
     Dates: start: 202407

REACTIONS (1)
  - Device difficult to use [Unknown]

NARRATIVE: CASE EVENT DATE: 20240924
